FAERS Safety Report 9758477 (Version 1)
Quarter: 2013Q4

REPORT INFORMATION
  Report Type: Spontaneous
  Country: US (occurrence: None)
  Receive Date: 20131216
  Receipt Date: 20131216
  Transmission Date: 20140711
  Serious: No
  Sender: FDA-Public Use
  Company Number: CABO-13002381

PATIENT
  Age: 67 Year
  Sex: Female
  Weight: 50 kg

DRUGS (1)
  1. COMETRIQ [Suspect]
     Indication: MEDULLARY THYROID CANCER
     Dosage: 60 MG, QD, ORAL

REACTIONS (4)
  - Epistaxis [None]
  - Decreased appetite [None]
  - Nausea [None]
  - Weight decreased [None]
